FAERS Safety Report 6676338-4 (Version None)
Quarter: 2010Q2

REPORT INFORMATION
  Report Type: 
  Country: None (occurrence: None)
  Receive Date: 20100408
  Receipt Date: 20100322
  Transmission Date: 20101027
  Serious: Yes (Other)
  Sender: FDA-Public Use
  Company Number: 1-22007020

PATIENT
  Age: 20 Year
  Sex: Female
  Weight: 77.1115 kg

DRUGS (16)
  1. PHENYTOIN SODIUM EXTENDED CAPSULES USP [Suspect]
     Indication: EPILEPSY
     Dosage: 400 MG, DAILY ORAL
     Route: 048
     Dates: start: 20100101
  2. OMEPRAZOLE [Concomitant]
  3. ZANTAC [Concomitant]
  4. SYMBICORT [Concomitant]
  5. DOXYCYCLINE [Concomitant]
  6. SINGULAIR [Concomitant]
  7. ALLEGRA [Concomitant]
  8. LOSEASONIQUE [Concomitant]
  9. ZOLOFT [Concomitant]
  10. SEROQUEL [Concomitant]
  11. ALBUTEROL INHALER RESCUE INHALER AS NEEDED [Concomitant]
  12. PHENERGAN [Concomitant]
  13. NORCO 5/325 [Concomitant]
  14. AMBIEN [Concomitant]
  15. MAXALT [Concomitant]
  16. VERAPAMIL [Concomitant]

REACTIONS (4)
  - ANTICONVULSANT DRUG LEVEL DECREASED [None]
  - CONVULSION [None]
  - PRODUCT SUBSTITUTION ISSUE [None]
  - PRODUCT TASTE ABNORMAL [None]
